FAERS Safety Report 5867924-X (Version None)
Quarter: 2008Q3

REPORT INFORMATION
  Report Type: 
  Country: None (occurrence: None)
  Receive Date: 20080902
  Receipt Date: 20080825
  Transmission Date: 20090109
  Serious: No
  Sender: FDA-Public Use
  Company Number: US-BOEHRINGER INGELHEIM GMBH, GERMANY-2008-BP-13591BP

PATIENT
  Sex: Female

DRUGS (5)
  1. SPIRIVA [Suspect]
     Indication: EMPHYSEMA
     Route: 055
     Dates: start: 20080825, end: 20080825
  2. LIPITOR [Concomitant]
  3. PLAVIX [Concomitant]
  4. AVANDIA [Concomitant]
  5. BENICAR [Concomitant]

REACTIONS (2)
  - DIZZINESS [None]
  - FALL [None]
